FAERS Safety Report 6428413-7 (Version None)
Quarter: 2009Q4

REPORT INFORMATION
  Report Type: 
  Country: None (occurrence: None)
  Receive Date: 20091105
  Receipt Date: 20091030
  Transmission Date: 20100525
  Serious: Yes (Other)
  Sender: FDA-Public Use
  Company Number: A0812244A

PATIENT
  Age: 45 Year
  Sex: Male
  Weight: 82.7 kg

DRUGS (2)
  1. MALARONE [Suspect]
     Indication: MALARIA PROPHYLAXIS
     Route: 048
  2. NONE [Concomitant]

REACTIONS (5)
  - H1N1 INFLUENZA [None]
  - LEUKOPENIA [None]
  - PYREXIA [None]
  - RASH [None]
  - VIRAL INFECTION [None]
